FAERS Safety Report 4705651-2 (Version None)
Quarter: 2005Q2

REPORT INFORMATION
  Report Type: 
  Country: None (occurrence: None)
  Receive Date: 20050630
  Receipt Date: 20050621
  Transmission Date: 20051028
  Serious: Yes (Death)
  Sender: FDA-Public Use
  Company Number: HQWYE691224JUN05

PATIENT

DRUGS (3)
  1. RAPAMUNE [Suspect]
     Indication: GRAFT VERSUS HOST DISEASE
     Dosage: 2 MG/DAY WITH TARGET SERUM CONCENTRATION OF 8-12UG/ML
  2. CYCLOSPORINE [Concomitant]
  3. TACROLIMUS (TACROLIMUS) [Concomitant]

REACTIONS (1)
  - CONCOMITANT DISEASE PROGRESSION [None]
